FAERS Safety Report 6632153-9 (Version None)
Quarter: 2010Q1

REPORT INFORMATION
  Report Type: 
  Country: None (occurrence: None)
  Receive Date: 20100312
  Receipt Date: 20100301
  Transmission Date: 20100710
  Serious: Yes (Death, Other)
  Sender: FDA-Public Use
  Company Number: US-GENZYME-CLOF-1000886

PATIENT
  Age: 51 Year

DRUGS (2)
  1. CLOLAR [Suspect]
     Indication: ACUTE MYELOID LEUKAEMIA
     Dosage: 20 MG, UNK
     Route: 042
     Dates: start: 20090307, end: 20090324
  2. GEMTUZUMAB OZOGAMICIN [Suspect]
     Indication: ACUTE MYELOID LEUKAEMIA
     Dosage: UNK UNK, UNK
     Route: 065
     Dates: start: 20090301

REACTIONS (9)
  - ACIDOSIS [None]
  - ASPARTATE AMINOTRANSFERASE INCREASED [None]
  - DEATH [None]
  - DYSPNOEA [None]
  - INFECTION [None]
  - LEFT VENTRICULAR DYSFUNCTION [None]
  - NEUTROPENIA [None]
  - SOMNOLENCE [None]
  - THROMBOCYTOPENIA [None]
